FAERS Safety Report 9733434 (Version 1)
Quarter: 2013Q4

REPORT INFORMATION
  Report Type: Spontaneous
  Country: US (occurrence: None)
  Receive Date: 20131204
  Receipt Date: 20131204
  Transmission Date: 20140711
  Serious: No
  Sender: FDA-Public Use
  Company Number: None

PATIENT
  Sex: Male
  Weight: 134.27 kg

DRUGS (1)
  1. NASACORT [Suspect]
     Indication: RHINITIS ALLERGIC
     Dosage: 2 SPRAYS, OD, NASAL
     Route: 045

REACTIONS (2)
  - Headache [None]
  - Paraesthesia [None]
